FAERS Safety Report 4384720-3 (Version None)
Quarter: 2004Q2

REPORT INFORMATION
  Report Type: 
  Country: None (occurrence: None)
  Receive Date: 20040621
  Receipt Date: 20040611
  Transmission Date: 20050107
  Serious: Yes (Death)
  Sender: FDA-Public Use
  Company Number: 2004AP03122

PATIENT
  Age: 18 Year
  Sex: Female

DRUGS (3)
  1. PULMICORT [Suspect]
     Indication: ASTHMA
  2. VENTOLIN [Concomitant]
  3. AUGMENTIN [Concomitant]

REACTIONS (1)
  - DYSPNOEA [None]
